FAERS Safety Report 20384549 (Version 1)
Quarter: 2022Q1

REPORT INFORMATION
  Report Type: Spontaneous
  Country: US (occurrence: US)
  Receive Date: 20220127
  Receipt Date: 20220127
  Transmission Date: 20220423
  Serious: No
  Sender: FDA-Public Use
  Company Number: US-NOVAST LABORATORIES INC.-2021NOV000320

PATIENT

DRUGS (1)
  1. MICROGESTIN 1/20 [Suspect]
     Active Substance: ETHINYL ESTRADIOL\NORETHINDRONE ACETATE
     Indication: Menstrual cycle management
     Dosage: UNK
     Route: 065
     Dates: start: 2021

REACTIONS (4)
  - Neuropathy peripheral [Not Recovered/Not Resolved]
  - Intermenstrual bleeding [Unknown]
  - Heavy menstrual bleeding [Unknown]
  - Drug ineffective for unapproved indication [Unknown]

NARRATIVE: CASE EVENT DATE: 20210101
